FAERS Safety Report 19932822 (Version 2)
Quarter: 2022Q2

REPORT INFORMATION
  Report Type: Report from Study
  Country: FR (occurrence: None)
  Receive Date: 20211008
  Receipt Date: 20220505
  Transmission Date: 20220721
  Serious: Yes (Death)
  Sender: FDA-Public Use
  Company Number: FR-ROCHE-2930068

PATIENT
  Age: 69 Year
  Sex: Female
  Weight: 78 kg

DRUGS (3)
  1. ATEZOLIZUMAB [Suspect]
     Active Substance: ATEZOLIZUMAB
     Indication: Ovarian cancer recurrent
     Dosage: WHICH WAS ALSO THE LAST DOSE ADMINISTERED.
     Route: 041
     Dates: start: 20210922
  2. BEVACIZUMAB [Suspect]
     Active Substance: BEVACIZUMAB
     Indication: Ovarian cancer recurrent
     Dosage: WHICH WAS ALSO THE LAST DOSE ADMINISTERED.
     Route: 042
     Dates: start: 20210922
  3. DOXORUBICIN [Suspect]
     Active Substance: DOXORUBICIN
     Indication: Ovarian cancer recurrent
     Dosage: WHICH WAS ALSO THE LAST DOSE ADMINISTERED.
     Route: 042
     Dates: start: 20210922

REACTIONS (1)
  - Death [Fatal]

NARRATIVE: CASE EVENT DATE: 20211004
